FAERS Safety Report 11691035 (Version 2)
Quarter: 2016Q1

REPORT INFORMATION
  Report Type: Spontaneous
  Country: US (occurrence: US)
  Receive Date: 20151102
  Receipt Date: 20160115
  Transmission Date: 20160525
  Serious: Yes (Death, Hospitalization, Other)
  Sender: FDA-Public Use
  Company Number: US-GLAXOSMITHKLINE-US2015GSK156624

PATIENT
  Age: 49 Year
  Sex: Female

DRUGS (1)
  1. BENLYSTA [Suspect]
     Active Substance: BELIMUMAB
     Indication: SYSTEMIC LUPUS ERYTHEMATOSUS
     Dosage: UNK, U
     Route: 042

REACTIONS (16)
  - B-cell lymphoma [Fatal]
  - Endotracheal intubation [Recovered/Resolved]
  - Renal failure [Not Recovered/Not Resolved]
  - Altered state of consciousness [Not Recovered/Not Resolved]
  - Staphylococcal infection [Not Recovered/Not Resolved]
  - Thrombocytopenia [Not Recovered/Not Resolved]
  - Intensive care [Recovered/Resolved]
  - Respiratory distress [Unknown]
  - Acute respiratory failure [Not Recovered/Not Resolved]
  - Metastases to central nervous system [Fatal]
  - Hepatic failure [Not Recovered/Not Resolved]
  - Brain oedema [Fatal]
  - Mechanical ventilation [Recovered/Resolved]
  - Acute kidney injury [Not Recovered/Not Resolved]
  - Bacterial infection [Not Recovered/Not Resolved]
  - Epstein-Barr virus associated lymphoma [Not Recovered/Not Resolved]

NARRATIVE: CASE EVENT DATE: 20140614
